FAERS Safety Report 7479800-X (Version None)
Quarter: 2011Q2

REPORT INFORMATION
  Report Type: 
  Country: None (occurrence: None)
  Receive Date: 20110513
  Receipt Date: 20110506
  Transmission Date: 20111010
  Serious: Yes (Other)
  Sender: FDA-Public Use
  Company Number: US-MERCK-1104USA00004

PATIENT
  Age: 48 Year
  Sex: Female
  Weight: 69 kg

DRUGS (7)
  1. AVELOX [Concomitant]
     Route: 065
  2. SINGULAIR [Suspect]
     Indication: HYPERSENSITIVITY
     Route: 048
     Dates: start: 20070101, end: 20110201
  3. SYMBICORT [Concomitant]
     Indication: ASTHMA
     Route: 065
  4. BUDESONIDE [Concomitant]
     Indication: POLYP
     Route: 055
  5. SINGULAIR [Suspect]
     Indication: ASTHMA
     Route: 048
     Dates: start: 20070101, end: 20110201
  6. LISINOPRIL [Concomitant]
     Indication: HYPERTENSION
     Route: 065
  7. ACIPHEX [Concomitant]
     Indication: GASTROOESOPHAGEAL REFLUX DISEASE
     Route: 065

REACTIONS (8)
  - PYREXIA [None]
  - WHEEZING [None]
  - EOSINOPHIL COUNT INCREASED [None]
  - UVEITIS [None]
  - ALLERGIC GRANULOMATOUS ANGIITIS [None]
  - NODULE [None]
  - DYSPNOEA [None]
  - COUGH [None]
